FAERS Safety Report 22034535 (Version 1)
Quarter: 2023Q1

REPORT INFORMATION
  Report Type: Spontaneous
  Country: US (occurrence: US)
  Receive Date: 20230224
  Receipt Date: 20230224
  Transmission Date: 20230418
  Serious: No
  Sender: FDA-Public Use
  Company Number: US-SA-SAC20230221001047

PATIENT
  Age: 71 Year
  Sex: Female

DRUGS (17)
  1. DUPIXENT [Suspect]
     Active Substance: DUPILUMAB
     Indication: Dermatitis
     Dosage: 300 MG, QOW
     Route: 058
     Dates: start: 20221228
  2. BENADRYL [Concomitant]
     Active Substance: DIPHENHYDRAMINE HYDROCHLORIDE
  3. ELIQUIS [Concomitant]
     Active Substance: APIXABAN
  4. ESTRACE [Concomitant]
     Active Substance: ESTRADIOL
  5. KETOCONAZOLE [Concomitant]
     Active Substance: KETOCONAZOLE
  6. TAGRISSO [Concomitant]
     Active Substance: OSIMERTINIB
  7. TYLENOL [Concomitant]
     Active Substance: ACETAMINOPHEN
  8. AMITRIPTYLINE [Concomitant]
     Active Substance: AMITRIPTYLINE
  9. BETAMETHASONE [Concomitant]
     Active Substance: BETAMETHASONE
  10. CALCIUM [Concomitant]
     Active Substance: CALCIUM
  11. CLINDAMYCIN [Concomitant]
     Active Substance: CLINDAMYCIN
  12. FIBER [Concomitant]
  13. IPRATROPIUM [Concomitant]
     Active Substance: IPRATROPIUM
  14. LEVOTHYROXINE [Concomitant]
     Active Substance: LEVOTHYROXINE
  15. VALTREX [Concomitant]
     Active Substance: VALACYCLOVIR HYDROCHLORIDE
  16. ZINC [Concomitant]
     Active Substance: ZINC
  17. ZYRTEC [Concomitant]
     Active Substance: CETIRIZINE HYDROCHLORIDE

REACTIONS (16)
  - Eczema [Not Recovered/Not Resolved]
  - Onychoclasis [Not Recovered/Not Resolved]
  - Pruritus [Not Recovered/Not Resolved]
  - Skin haemorrhage [Not Recovered/Not Resolved]
  - Skin fissures [Not Recovered/Not Resolved]
  - Skin exfoliation [Not Recovered/Not Resolved]
  - Dry eye [Not Recovered/Not Resolved]
  - Urinary tract infection [Not Recovered/Not Resolved]
  - Scab [Not Recovered/Not Resolved]
  - Paronychia [Not Recovered/Not Resolved]
  - Rash erythematous [Not Recovered/Not Resolved]
  - Therapeutic response shortened [Unknown]
  - Stomatitis [Not Recovered/Not Resolved]
  - Rash papular [Not Recovered/Not Resolved]
  - Erythema [Not Recovered/Not Resolved]
  - Product use in unapproved indication [Unknown]

NARRATIVE: CASE EVENT DATE: 20221228
